FAERS Safety Report 9181178 (Version 2)
Quarter: 2013Q1

REPORT INFORMATION
  Report Type: Spontaneous
  Country: None (occurrence: US)
  Receive Date: 20130322
  Receipt Date: 20130322
  Transmission Date: 20140127
  Serious: No
  Sender: FDA-Public Use
  Company Number: -MYLANLABS-2012S1014187

PATIENT
  Sex: Female

DRUGS (1)
  1. EMSAM [Suspect]
     Indication: DEPRESSION
     Dosage: QDAILY
     Route: 062
     Dates: end: 201206

REACTIONS (1)
  - Application site rash [Recovered/Resolved]
